FAERS Safety Report 7888245-X (Version None)
Quarter: 2011Q4

REPORT INFORMATION
  Report Type: 
  Country: None (occurrence: None)
  Receive Date: 20111103
  Receipt Date: 20111027
  Transmission Date: 20120403
  Serious: Yes (Death)
  Sender: FDA-Public Use
  Company Number: US-MYLANLABS-2009S1015602

PATIENT
  Age: 45 Year
  Sex: Female

DRUGS (11)
  1. ALPRAZOLAM [Concomitant]
  2. KADIAN [Suspect]
     Indication: PAIN
     Route: 048
  3. LASIX [Concomitant]
  4. MERIDIA [Concomitant]
     Route: 048
  5. FENTANYL-100 [Suspect]
     Indication: PAIN
     Dosage: CHANGE EVERY 2 - 3 DAYS
     Route: 062
     Dates: end: 20070910
  6. LAMICTAL [Concomitant]
  7. ABILIFY [Concomitant]
     Route: 048
  8. PROVENTIL [Concomitant]
     Route: 055
  9. LYRICA [Concomitant]
  10. CAMPRAL [Concomitant]
  11. SEROQUEL [Concomitant]

REACTIONS (2)
  - HYPERTENSIVE HEART DISEASE [None]
  - TOXICITY TO VARIOUS AGENTS [None]
